FAERS Safety Report 17429898 (Version 4)
Quarter: 2021Q3

REPORT INFORMATION
  Report Type: Spontaneous
  Country: US (occurrence: US)
  Receive Date: 20200218
  Receipt Date: 20210924
  Transmission Date: 20211014
  Serious: No
  Sender: FDA-Public Use
  Company Number: US-PFIZER INC-2020066311

PATIENT
  Age: 53 Year
  Sex: Female
  Weight: 118 kg

DRUGS (42)
  1. DOCETAXEL SANOFI?AVENTIS [Suspect]
     Active Substance: DOCETAXEL
     Dosage: 130 MG, CYCLIC (EVERY THREE WEEKS FOR 4 CYCLES)
     Dates: start: 20180301, end: 20180503
  2. TAXOTERE [Concomitant]
     Active Substance: DOCETAXEL
     Indication: CHEMOTHERAPY
     Dosage: UNK
  3. ZOFRAN [Concomitant]
     Active Substance: ONDANSETRON HYDROCHLORIDE
     Dosage: UNK
  4. DOCETAXEL. [Suspect]
     Active Substance: DOCETAXEL
     Dosage: 75 MG, CYCLIC (EVERY THREE WEEKS FOR 4 CYCLES)
     Dates: start: 20180301, end: 20180503
  5. PANTOPRAZOLE EC [Concomitant]
     Dosage: 40 MG
     Dates: start: 20150721
  6. VERAPAMIL ER [Concomitant]
     Active Substance: VERAPAMIL HYDROCHLORIDE
     Dosage: 180 MG
     Dates: start: 20141027
  7. DOCETAXEL SANDOZ [Suspect]
     Active Substance: DOCETAXEL
     Dosage: 165 MG, CYCLIC (EVERY THREE WEEKS FOR 4 CYCLES)
     Dates: start: 20180301, end: 20180503
  8. DOCETAXEL SANDOZ [Suspect]
     Active Substance: DOCETAXEL
     Dosage: 75 MG, CYCLIC (EVERY THREE WEEKS FOR 4 CYCLES)
     Dates: start: 20180301, end: 20180503
  9. PRAVASTATIN. [Concomitant]
     Active Substance: PRAVASTATIN
     Dosage: 40 MG
     Dates: start: 2014
  10. BUMETANIDE. [Concomitant]
     Active Substance: BUMETANIDE
     Dosage: 2 MG
     Dates: start: 20150317
  11. GABAPENTIN. [Concomitant]
     Active Substance: GABAPENTIN
     Dosage: 300 MG
     Dates: start: 20141027
  12. DIPHENOXYLATE/ATROPINE [Concomitant]
     Active Substance: ATROPINE\DIPHENOXYLATE
     Dosage: UNK
  13. DOCETAXEL. [Suspect]
     Active Substance: DOCETAXEL
     Dosage: 165 MG, CYCLIC (EVERY THREE WEEKS FOR 4 CYCLES)
     Dates: start: 20180301, end: 20180503
  14. DOCETAXEL SANOFI?AVENTIS [Suspect]
     Active Substance: DOCETAXEL
     Indication: INVASIVE DUCTAL BREAST CARCINOMA
     Dosage: 165 MG, CYCLIC (EVERY THREE WEEKS FOR 4 CYCLES)
     Dates: start: 20180301, end: 20180503
  15. DOCETAXEL SANDOZ [Suspect]
     Active Substance: DOCETAXEL
     Dosage: 130 MG, CYCLIC (EVERY THREE WEEKS FOR 4 CYCLES)
     Dates: start: 20180301, end: 20180503
  16. NEOSAR [Concomitant]
     Active Substance: CYCLOPHOSPHAMIDE
     Indication: CHEMOTHERAPY
     Dosage: UNK
  17. LEVOTHYROXINE. [Concomitant]
     Active Substance: LEVOTHYROXINE
     Indication: HORMONE THERAPY
     Dosage: 100 MG, DAILY
     Dates: start: 1998
  18. DULOXETINE. [Concomitant]
     Active Substance: DULOXETINE
     Dosage: 60 MG
     Dates: start: 2011
  19. SPIRONOLACTONE. [Concomitant]
     Active Substance: SPIRONOLACTONE
     Dosage: 25 MG
     Dates: start: 20160428
  20. BACLOFEN. [Concomitant]
     Active Substance: BACLOFEN
     Dosage: 20 MG
     Dates: start: 20170306
  21. LEVOTHYROXINE. [Concomitant]
     Active Substance: LEVOTHYROXINE
     Dosage: 0.1 MG
     Dates: start: 201101
  22. METFORMIN [Concomitant]
     Active Substance: METFORMIN HYDROCHLORIDE
     Dosage: 500 MG
     Dates: start: 20161205
  23. METOPROLOL SUCCINATE ER [Concomitant]
     Active Substance: METOPROLOL SUCCINATE
     Dosage: 25 MG
     Dates: start: 20140910
  24. POTASSIUM CHLORIDE. [Concomitant]
     Active Substance: POTASSIUM CHLORIDE
     Dosage: 20 MEQ
     Dates: start: 20151027
  25. DOCETAXEL SANDOZ [Suspect]
     Active Substance: DOCETAXEL
     Indication: INVASIVE DUCTAL BREAST CARCINOMA
     Dosage: 165 MG, CYCLIC (EVERY THREE WEEKS FOR 4 CYCLES)
     Dates: start: 20180301, end: 20180503
  26. VIT. E OTC [Concomitant]
     Dosage: 400 IU
     Dates: start: 20150612
  27. FIBERCON OTC [Concomitant]
     Dosage: 1250 MG
     Dates: start: 20141027
  28. ANASTROZOLE. [Concomitant]
     Active Substance: ANASTROZOLE
     Indication: INVASIVE DUCTAL BREAST CARCINOMA
     Dosage: 1 MG
     Dates: start: 20180726
  29. ANASTROZOLE. [Concomitant]
     Active Substance: ANASTROZOLE
     Indication: HORMONE THERAPY
  30. NYSTATIN. [Concomitant]
     Active Substance: NYSTATIN
     Dosage: UNK
  31. DEXAMETHASONE. [Concomitant]
     Active Substance: DEXAMETHASONE
     Dosage: UNK
  32. TRAMADOL. [Concomitant]
     Active Substance: TRAMADOL
     Dosage: UNK, AS NEEDED
  33. DOCETAXEL. [Suspect]
     Active Substance: DOCETAXEL
     Indication: INVASIVE DUCTAL BREAST CARCINOMA
     Dosage: 165 MG, CYCLIC (EVERY THREE WEEKS FOR 4 CYCLES)
     Dates: start: 20180301, end: 20180503
  34. DOCETAXEL SANOFI?AVENTIS [Suspect]
     Active Substance: DOCETAXEL
     Dosage: 75 MG, CYCLIC (EVERY THREE WEEKS FOR 4 CYCLES)
     Dates: start: 20180301, end: 20180503
  35. VITAMIN D3 CALCIUM OTC [Concomitant]
     Dosage: 2000 IU/500 MG
     Dates: start: 20160801
  36. CLARITIN [Concomitant]
     Active Substance: LORATADINE
     Dosage: UNK
  37. COMPAZINE [Concomitant]
     Active Substance: PROCHLORPERAZINE MALEATE
     Dosage: UNK
  38. DOCETAXEL. [Suspect]
     Active Substance: DOCETAXEL
     Dosage: 130 MG, CYCLIC (EVERY THREE WEEKS FOR 4 CYCLES)
     Dates: start: 20180301, end: 20180503
  39. DOCETAXEL. [Suspect]
     Active Substance: DOCETAXEL
     Dosage: UNK
     Dates: start: 20180301, end: 20180503
  40. DOCETAXEL SANOFI?AVENTIS [Suspect]
     Active Substance: DOCETAXEL
     Dosage: 165 MG, CYCLIC (EVERY THREE WEEKS FOR 4 CYCLES)
     Dates: start: 20180301, end: 20180503
  41. NEULASTA [Concomitant]
     Active Substance: PEGFILGRASTIM
     Dosage: UNK
  42. ROXICODONE [Concomitant]
     Active Substance: OXYCODONE HYDROCHLORIDE
     Dosage: UNK, AS NEEDED

REACTIONS (6)
  - Hair colour changes [Not Recovered/Not Resolved]
  - Alopecia [Not Recovered/Not Resolved]
  - Madarosis [Not Recovered/Not Resolved]
  - Hair texture abnormal [Not Recovered/Not Resolved]
  - Depression [Unknown]
  - Hair disorder [Not Recovered/Not Resolved]

NARRATIVE: CASE EVENT DATE: 20180412
